FAERS Safety Report 9541806 (Version 2)
Quarter: 2013Q3

REPORT INFORMATION
  Report Type: Report from Study
  Country: US (occurrence: US)
  Receive Date: 20130923
  Receipt Date: 20130930
  Transmission Date: 20140515
  Serious: Yes (Hospitalization)
  Sender: FDA-Public Use
  Company Number: PHEH2013US019710

PATIENT
  Age: 60 Year
  Sex: Male

DRUGS (8)
  1. TASIGNA [Suspect]
     Indication: ILL-DEFINED DISORDER
     Dosage: 300 MG, BID
     Route: 048
     Dates: start: 201208
  2. TASIGNA [Suspect]
     Indication: OFF LABEL USE
  3. QUALAQUIN [Concomitant]
  4. ANDROGEL [Concomitant]
  5. ASPIRIN [Concomitant]
  6. LANTUS [Concomitant]
  7. HUMALOG [Concomitant]
  8. MICARDIS [Concomitant]

REACTIONS (2)
  - Renal failure [Recovered/Resolved]
  - Pneumonia [Recovered/Resolved]
